FAERS Safety Report 6203652-9 (Version None)
Quarter: 2009Q2

REPORT INFORMATION
  Report Type: 
  Country: None (occurrence: None)
  Receive Date: 20090522
  Receipt Date: 20090522
  Transmission Date: 20091009
  Serious: Yes (Other)
  Sender: FDA-Public Use
  Company Number: None

PATIENT
  Age: 28 Year
  Sex: Female
  Weight: 76.2043 kg

DRUGS (1)
  1. CAPZASIN  CAPSAICIN -0.15%-CHATTEM INC [Suspect]
     Indication: PAIN IN EXTREMITY
     Dosage: APPLY THOROUGHLY 3-4 TIMES PER DAY TOP
     Route: 061
     Dates: start: 20090519, end: 20090520

REACTIONS (9)
  - BURNING SENSATION [None]
  - COUGH [None]
  - ERYTHEMA [None]
  - INSOMNIA [None]
  - OEDEMA PERIPHERAL [None]
  - PAIN IN EXTREMITY [None]
  - PRURITUS [None]
  - SNEEZING [None]
  - THROAT IRRITATION [None]
